FAERS Safety Report 7936813-9 (Version None)
Quarter: 2011Q4

REPORT INFORMATION
  Report Type: 
  Country: None (occurrence: None)
  Receive Date: 20111123
  Receipt Date: 20111109
  Transmission Date: 20120403
  Serious: Yes (Other)
  Sender: FDA-Public Use
  Company Number: BR-ROCHE-1013584

PATIENT
  Sex: Female

DRUGS (11)
  1. PANTOPRAZOLE [Concomitant]
  2. HYDROCHLOROTHIAZIDE [Concomitant]
  3. LOSARTAN POTASSIUM [Concomitant]
  4. XOLAIR [Suspect]
     Indication: ASTHMA
     Dates: start: 20111101
  5. LORATADINE [Concomitant]
  6. DOMPERIDONE [Concomitant]
  7. FLUTICASONE PROPIONATE/SALMETEROL [Concomitant]
     Dosage: 50/500 UG
  8. VERAPAMIL [Concomitant]
  9. ACETAMINOPHEN [Concomitant]
  10. COMBIVENT [Concomitant]
  11. LEXOTAN [Concomitant]

REACTIONS (11)
  - OBSTRUCTIVE AIRWAYS DISORDER [None]
  - FATIGUE [None]
  - LACRIMATION INCREASED [None]
  - HERPES ZOSTER [None]
  - LUNG DISORDER [None]
  - ASTHMA [None]
  - TREMOR [None]
  - DYSPHONIA [None]
  - INSOMNIA [None]
  - RHINITIS ALLERGIC [None]
  - GAIT DISTURBANCE [None]
